FAERS Safety Report 7655221-1 (Version None)
Quarter: 2011Q3

REPORT INFORMATION
  Report Type: 
  Country: None (occurrence: None)
  Receive Date: 20110729
  Receipt Date: 20110719
  Transmission Date: 20111222
  Serious: Yes (Hospitalization)
  Sender: FDA-Public Use
  Company Number: 2011S1001016

PATIENT
  Age: 58 Year
  Sex: Female

DRUGS (6)
  1. LIVALO [Suspect]
     Indication: LOW DENSITY LIPOPROTEIN INCREASED
     Dosage: 2 MG;1X;PO 0.5DF;1X;PO
     Route: 048
     Dates: start: 20110201
  2. LIVALO [Suspect]
     Indication: LOW DENSITY LIPOPROTEIN INCREASED
     Dosage: 2 MG;1X;PO 0.5DF;1X;PO
     Route: 048
     Dates: start: 20110101
  3. INSULIN [Concomitant]
  4. LISINOPRIL [Concomitant]
  5. TOPROL-XL [Concomitant]
  6. SYNTHROID [Concomitant]

REACTIONS (4)
  - CHEST PAIN [None]
  - OESOPHAGEAL SPASM [None]
  - MYALGIA [None]
  - COELIAC DISEASE [None]
